FAERS Safety Report 13856429 (Version 1)
Quarter: 2017Q3

REPORT INFORMATION
  Report Type: Spontaneous
  Country: FR (occurrence: FR)
  Receive Date: 20170810
  Receipt Date: 20170810
  Transmission Date: 20171127
  Serious: Yes (Other)
  Sender: FDA-Public Use
  Company Number: FR-MERCK KGAA-2024474

PATIENT
  Age: 68 Year
  Sex: Female

DRUGS (3)
  1. LEVOTHYROX 100 NF [Suspect]
     Active Substance: LEVOTHYROXINE SODIUM
  2. NOVOTHYROX [Suspect]
     Active Substance: LEVOTHYROXINE SODIUM
     Indication: THYROIDECTOMY
     Dates: start: 2000
  3. LEVOTHYROX 125 NF [Suspect]
     Active Substance: LEVOTHYROXINE SODIUM

REACTIONS (5)
  - Gastrointestinal oedema [Unknown]
  - Disturbance in attention [Unknown]
  - Alopecia [Unknown]
  - Fatigue [Unknown]
  - Drug dispensing error [Unknown]

NARRATIVE: CASE EVENT DATE: 201704
